FAERS Safety Report 7497195-2 (Version None)
Quarter: 2011Q2

REPORT INFORMATION
  Report Type: 
  Country: None (occurrence: None)
  Receive Date: 20110523
  Receipt Date: 20110512
  Transmission Date: 20111010
  Serious: Yes (Hospitalization)
  Sender: FDA-Public Use
  Company Number: US-BAXTER-2011BH012653

PATIENT
  Age: 62 Year
  Sex: Female
  Weight: 60 kg

DRUGS (19)
  1. ACETAMINOPHEN [Concomitant]
     Indication: PROPHYLAXIS
     Route: 048
     Dates: start: 20110331
  2. SOLU-CORTEF [Concomitant]
     Indication: PROPHYLAXIS
     Route: 048
     Dates: start: 20110331
  3. CRESTOR [Concomitant]
     Indication: PRODUCT USED FOR UNKNOWN INDICATION
     Route: 048
  4. GAMMAGARD LIQUID [Suspect]
     Route: 042
     Dates: start: 20110412
  5. GAMMAGARD LIQUID [Suspect]
     Route: 042
     Dates: start: 20110101
  6. GAMMAGARD LIQUID [Suspect]
     Indication: OFF LABEL USE
     Route: 042
     Dates: start: 20110412
  7. GAMMAGARD LIQUID [Suspect]
     Route: 042
     Dates: start: 20110101
  8. GAMMAGARD LIQUID [Suspect]
     Route: 042
     Dates: start: 20110331, end: 20110401
  9. GAMMAGARD LIQUID [Suspect]
     Route: 042
     Dates: start: 20110331, end: 20110401
  10. GAMMAGARD LIQUID [Suspect]
     Route: 042
     Dates: start: 20110331, end: 20110401
  11. GAMMAGARD LIQUID [Suspect]
     Route: 042
     Dates: start: 20110101
  12. GAMMAGARD LIQUID [Suspect]
     Route: 042
     Dates: start: 20110412
  13. GAMMAGARD LIQUID [Suspect]
     Route: 042
     Dates: start: 20110101
  14. HYDROCHLOROTHIAZIDE [Concomitant]
     Indication: PRODUCT USED FOR UNKNOWN INDICATION
     Route: 048
  15. GAMMAGARD LIQUID [Suspect]
     Indication: DEMYELINATING POLYNEUROPATHY
     Route: 042
     Dates: start: 20110412
  16. VITAMIN E [Concomitant]
     Indication: PRODUCT USED FOR UNKNOWN INDICATION
     Route: 048
  17. GAMMAGARD LIQUID [Suspect]
     Route: 042
     Dates: start: 20110331, end: 20110401
  18. DIPHENHYDRAMINE HCL [Concomitant]
     Indication: PROPHYLAXIS
     Route: 048
     Dates: start: 20110331
  19. CELEXA [Concomitant]
     Indication: PRODUCT USED FOR UNKNOWN INDICATION
     Route: 048

REACTIONS (4)
  - CHEST PAIN [None]
  - DYSPNOEA [None]
  - PULMONARY EMBOLISM [None]
  - DEEP VEIN THROMBOSIS [None]
